FAERS Safety Report 9837378 (Version 2)
Quarter: 2014Q1

REPORT INFORMATION
  Report Type: Spontaneous
  Country: US (occurrence: US)
  Receive Date: 20140123
  Receipt Date: 20140312
  Transmission Date: 20141002
  Serious: Yes (Hospitalization)
  Sender: FDA-Public Use
  Company Number: US-PFIZER INC-2014020986

PATIENT
  Age: 38 Year
  Sex: Female
  Weight: 110 kg

DRUGS (6)
  1. LYRICA [Suspect]
     Indication: FIBROMYALGIA
     Dosage: 50 MG, 2X/DAY
     Dates: start: 201304
  2. LYRICA [Suspect]
     Dosage: 50 MG, 3X/DAY
  3. LYRICA [Suspect]
     Dosage: 50 MG, 4X/DAY
  4. LYRICA [Suspect]
     Dosage: 50 MG, UNK
  5. MINOCYCLINE [Concomitant]
     Indication: PYODERMA GANGRENOSUM
     Dosage: 50 MG, 2X/DAY
  6. PREDNISONE [Concomitant]
     Indication: PYODERMA GANGRENOSUM
     Dosage: 15 MG, 1X/DAY

REACTIONS (3)
  - Pulmonary embolism [Unknown]
  - Deep vein thrombosis [Unknown]
  - Influenza [Unknown]
